FAERS Safety Report 16668618 (Version 8)
Quarter: 2020Q4

REPORT INFORMATION
  Report Type: Spontaneous
  Country: US (occurrence: US)
  Receive Date: 20190805
  Receipt Date: 20201020
  Transmission Date: 20210113
  Serious: No
  Sender: FDA-Public Use
  Company Number: US-PFIZER INC-2019138572

PATIENT
  Age: 72 Year
  Sex: Female
  Weight: 81.32 kg

DRUGS (4)
  1. CYMBALTA [Concomitant]
     Active Substance: DULOXETINE HYDROCHLORIDE
     Dosage: UNK
  2. LYRICA [Suspect]
     Active Substance: PREGABALIN
     Indication: PAIN
     Dosage: 100 MG, 3X/DAY
     Route: 048
  3. LYRICA [Suspect]
     Active Substance: PREGABALIN
     Indication: OSTEOARTHRITIS
     Dosage: 100 MG (2 CAPSULES IN THE AM, ONE CAPSLUE AS NEEDED IN THE PM 90 DAYS)
     Route: 048
  4. LYRICA [Suspect]
     Active Substance: PREGABALIN
     Indication: SCIATICA
     Dosage: UNK, 2X/DAY

REACTIONS (8)
  - Intentional product misuse [Unknown]
  - Nervousness [Unknown]
  - Hyperhidrosis [Unknown]
  - Malaise [Unknown]
  - Eye disorder [Unknown]
  - Product dose omission in error [Unknown]
  - Hypertension [Unknown]
  - Withdrawal syndrome [Unknown]
